FAERS Safety Report 21626203 (Version 1)
Quarter: 2022Q4

REPORT INFORMATION
  Report Type: Spontaneous
  Country: US (occurrence: None)
  Receive Date: 20221122
  Receipt Date: 20221122
  Transmission Date: 20230112
  Serious: No
  Sender: FDA-Public Use
  Company Number: US-ROCHE-2995493

PATIENT
  Sex: Female
  Weight: 54.026 kg

DRUGS (6)
  1. PULMOZYME [Suspect]
     Active Substance: DORNASE ALFA
     Indication: Bacterial disease carrier
     Dosage: INHALE 2.5ML BY INHALATION
     Route: 065
     Dates: start: 20210513
  2. OMEPRAZOLE [Concomitant]
     Active Substance: OMEPRAZOLE
     Route: 048
     Dates: start: 20210511
  3. TOPAMAX [Concomitant]
     Active Substance: TOPIRAMATE
     Route: 048
     Dates: start: 20210511
  4. VITAMIN K [Concomitant]
     Active Substance: PHYTONADIONE
     Route: 048
     Dates: start: 20210511
  5. AZITHROMYCIN [Concomitant]
     Active Substance: AZITHROMYCIN
     Route: 048
     Dates: start: 20210511
  6. KALYDECO [Concomitant]
     Active Substance: IVACAFTOR
     Route: 048
     Dates: start: 20210511

REACTIONS (2)
  - Intentional product use issue [Unknown]
  - Weight decreased [Unknown]
